FAERS Safety Report 5573614-3 (Version None)
Quarter: 2007Q4

REPORT INFORMATION
  Report Type: 
  Country: None (occurrence: None)
  Receive Date: 20071220
  Receipt Date: 20071212
  Transmission Date: 20080405
  Serious: Yes (Other)
  Sender: FDA-Public Use
  Company Number: 2007337626

PATIENT
  Age: 3 Year
  Sex: Female

DRUGS (1)
  1. CHILDREN'S PEDIACARE LONG ACTING COUGH (DEXTROMETHORPHAN) [Suspect]
     Indication: NASOPHARYNGITIS
     Dosage: 1 TEASPOON 4 TIMES A DAY (4 IN D), ORAL
     Route: 048
     Dates: start: 20071007, end: 20071011

REACTIONS (1)
  - RASH [None]
